FAERS Safety Report 15663514 (Version 1)
Quarter: 2018Q4

REPORT INFORMATION
  Report Type: Spontaneous
  Country: JP (occurrence: JP)
  Receive Date: 20181128
  Receipt Date: 20181128
  Transmission Date: 20190205
  Serious: Yes (Death, Other)
  Sender: FDA-Public Use
  Company Number: JP-ROCHE-2221292

PATIENT
  Age: 6 Decade
  Sex: Female

DRUGS (6)
  1. GIMERACIL [Concomitant]
     Active Substance: GIMERACIL
  2. PEG-INTERFERON ALFA 2A [Concomitant]
     Active Substance: PEGINTERFERON ALFA-2A
     Route: 065
  3. TACROLIMUS. [Concomitant]
     Active Substance: TACROLIMUS
  4. CELLCEPT [Suspect]
     Active Substance: MYCOPHENOLATE MOFETIL\MYCOPHENOLATE MOFETIL HYDROCHLORIDE
     Indication: PROPHYLAXIS AGAINST TRANSPLANT REJECTION
     Dosage: DOSAGE IS UNCERTAIN.
     Route: 048
  5. TEGAFUR/URACIL [Concomitant]
     Active Substance: TEGAFUR\URACIL
     Route: 048
  6. OTERACIL POTASSIUM [Concomitant]
     Active Substance: OTERACIL POTASSIUM

REACTIONS (3)
  - Mass [Unknown]
  - Metastases to peritoneum [Fatal]
  - Afferent loop syndrome [Unknown]
